FAERS Safety Report 17303540 (Version 1)
Quarter: 2020Q1

REPORT INFORMATION
  Report Type: Spontaneous
  Country: US (occurrence: US)
  Receive Date: 20200122
  Receipt Date: 20200122
  Transmission Date: 20200409
  Serious: No
  Sender: FDA-Public Use
  Company Number: US-AVION PHARMACEUTICALS, LLC-2079312

PATIENT
  Age: 32 Year
  Sex: Female

DRUGS (1)
  1. BALCOLTRA [Suspect]
     Active Substance: ETHINYL ESTRADIOL\LEVONORGESTREL
     Indication: METRORRHAGIA
     Route: 065
     Dates: start: 2019

REACTIONS (2)
  - Drug ineffective [Recovered/Resolved]
  - Product use in unapproved indication [Not Recovered/Not Resolved]

NARRATIVE: CASE EVENT DATE: 2019
